FAERS Safety Report 8376096-1 (Version None)
Quarter: 2012Q2

REPORT INFORMATION
  Report Type: 
  Country: None (occurrence: None)
  Receive Date: 20120522
  Receipt Date: 20120514
  Transmission Date: 20120825
  Serious: Yes (Hospitalization)
  Sender: FDA-Public Use
  Company Number: IL-SANOFI-AVENTIS-2012SA034415

PATIENT
  Age: 62 Year
  Sex: Male

DRUGS (1)
  1. JEVTANA KIT [Suspect]
     Route: 065

REACTIONS (2)
  - PEPTIC ULCER HAEMORRHAGE [None]
  - CELLULITIS [None]
